FAERS Safety Report 16077276 (Version 2)
Quarter: 2019Q3

REPORT INFORMATION
  Report Type: Report from Study
  Country: FR (occurrence: FR)
  Receive Date: 20190315
  Receipt Date: 20190801
  Transmission Date: 20191004
  Serious: Yes (Hospitalization)
  Sender: FDA-Public Use
  Company Number: FR-PFIZER INC-2019110523

PATIENT
  Age: 80 Year
  Sex: Female
  Weight: 54 kg

DRUGS (9)
  1. SOOLANTRA [Concomitant]
     Active Substance: IVERMECTIN
     Dosage: UNK
     Dates: start: 20161216
  2. SORIATANE [Concomitant]
     Active Substance: ACITRETIN
     Dosage: UNK
     Dates: start: 20160610
  3. NO SUBJECT DRUG [Suspect]
     Active Substance: UNSPECIFIED INGREDIENT
     Dosage: NO DOSE GIVEN
  4. IMETH [Suspect]
     Active Substance: METHOTREXATE SODIUM
     Dosage: 10 MG, ONCE WEEKLY
     Route: 048
     Dates: start: 20161216
  5. SPECIAFOLDINE [Suspect]
     Active Substance: FOLIC ACID
     Dosage: 10 MG, ONCE EVERY 7 DAYS
     Route: 048
     Dates: start: 201101
  6. DAIVOBET [Concomitant]
     Active Substance: BETAMETHASONE DIPROPIONATE\CALCIPOTRIENE
     Dosage: UNK
     Dates: start: 20160610
  7. IMETH [Suspect]
     Active Substance: METHOTREXATE SODIUM
     Dosage: 15 MG, ONCE WEEKLY
     Route: 048
     Dates: start: 201101, end: 20161216
  8. DIPROSONE [Concomitant]
     Active Substance: BETAMETHASONE DIPROPIONATE
     Dosage: UNK
     Dates: start: 20160610
  9. CLOBEX [CLOBETASOL PROPIONATE] [Concomitant]
     Dosage: UNK

REACTIONS (1)
  - Transient ischaemic attack [Recovered/Resolved]

NARRATIVE: CASE EVENT DATE: 20181220
